FAERS Safety Report 10501968 (Version 1)
Quarter: 2014Q4

REPORT INFORMATION
  Report Type: Spontaneous
  Country: BG (occurrence: BG)
  Receive Date: 20141007
  Receipt Date: 20141007
  Transmission Date: 20150528
  Serious: Yes (Hospitalization, Other)
  Sender: FDA-Public Use
  Company Number: PHHY2014BG130112

PATIENT
  Age: 66 Year
  Sex: Female

DRUGS (3)
  1. LITHIUM [Interacting]
     Active Substance: LITHIUM CARBONATE
     Dosage: 450 MG, BID
  2. LISINOPRIL. [Suspect]
     Active Substance: LISINOPRIL
     Dosage: 10 MG, DAILY
  3. FURANTHRIL/FUROSEMIDE SODIUM [Interacting]
     Active Substance: FUROSEMIDE SODIUM
     Dosage: 40 MG, PER DAY

REACTIONS (16)
  - Gait disturbance [Recovering/Resolving]
  - Agitation [Recovering/Resolving]
  - Nausea [Recovering/Resolving]
  - Neurotoxicity [Recovering/Resolving]
  - Memory impairment [Recovering/Resolving]
  - Pallor [Recovering/Resolving]
  - Weight decreased [Recovering/Resolving]
  - Dry skin [Recovering/Resolving]
  - Abnormal behaviour [Recovering/Resolving]
  - Drug interaction [Unknown]
  - Toxicity to various agents [Recovering/Resolving]
  - Anxiety [Recovering/Resolving]
  - Tremor [Recovering/Resolving]
  - Ataxia [Recovering/Resolving]
  - Asthenia [Recovering/Resolving]
  - Confusional state [Recovering/Resolving]
